FAERS Safety Report 9766286 (Version 1)
Quarter: 2013Q4

REPORT INFORMATION
  Report Type: Spontaneous
  Country: US (occurrence: US)
  Receive Date: 20131217
  Receipt Date: 20131217
  Transmission Date: 20140711
  Serious: No
  Sender: FDA-Public Use
  Company Number: US-GLAXOSMITHKLINE-A1024736A

PATIENT
  Age: 69 Year
  Sex: Male

DRUGS (8)
  1. VOTRIENT [Suspect]
     Indication: NEOPLASM
     Dosage: 800MG PER DAY
     Route: 048
     Dates: start: 20130508
  2. PLAVIX [Concomitant]
  3. CALCIUM [Concomitant]
  4. LEVOXYL [Concomitant]
  5. DIGOXIN [Concomitant]
  6. LASIX [Concomitant]
  7. NITROGLYCERINE [Concomitant]
  8. TYLENOL WITH CODEINE [Concomitant]

REACTIONS (1)
  - Pain in extremity [Recovering/Resolving]
